FAERS Safety Report 11003817 (Version 2)
Quarter: 2015Q2

REPORT INFORMATION
  Report Type: Spontaneous
  Country: US (occurrence: US)
  Receive Date: 20150409
  Receipt Date: 20150528
  Transmission Date: 20150821
  Serious: Yes (Hospitalization, Disabling)
  Sender: FDA-Public Use
  Company Number: US-SA-2015SA042564

PATIENT
  Age: 52 Year
  Sex: Female
  Weight: 56.69 kg

DRUGS (7)
  1. SOLOSTAR [Concomitant]
     Active Substance: DEVICE
     Indication: DIABETES MELLITUS
     Dates: start: 2012
  2. LEVEMIR [Concomitant]
     Active Substance: INSULIN DETEMIR
  3. LANTUS SOLOSTAR [Suspect]
     Active Substance: INSULIN GLARGINE
     Indication: TYPE 1 DIABETES MELLITUS
     Dosage: DOSE:5 UNIT(S)
     Route: 065
     Dates: start: 201105
  4. SOLOSTAR [Concomitant]
     Active Substance: DEVICE
     Indication: DIABETES MELLITUS
     Dates: start: 201105
  5. NOVOLOG [Concomitant]
     Active Substance: INSULIN ASPART
  6. LANTUS SOLOSTAR [Suspect]
     Active Substance: INSULIN GLARGINE
     Indication: LATENT AUTOIMMUNE DIABETES IN ADULTS
     Dosage: DOSE:5 UNIT(S)
     Route: 065
     Dates: start: 201105
  7. APIDRA SOLOSTAR [Suspect]
     Active Substance: INSULIN GLULISINE
     Indication: DIABETES MELLITUS
     Dosage: DOSE:SLIDING SCALE
     Route: 065
     Dates: start: 2012

REACTIONS (5)
  - Loss of consciousness [Unknown]
  - Stiff person syndrome [Not Recovered/Not Resolved]
  - Drug administration error [Unknown]
  - Cardiac failure [Unknown]
  - Renal disorder [Unknown]

NARRATIVE: CASE EVENT DATE: 2011
